FAERS Safety Report 10111024 (Version 2)
Quarter: 2014Q2

REPORT INFORMATION
  Report Type: Spontaneous
  Country: US (occurrence: US)
  Receive Date: 20140425
  Receipt Date: 20140508
  Transmission Date: 20141212
  Serious: Yes (Death, Hospitalization, Other)
  Sender: FDA-Public Use
  Company Number: US-BAXTER-2014BAX019449

PATIENT
  Sex: Male

DRUGS (1)
  1. DIANEAL LOW CALCIUM [Suspect]
     Indication: PERITONEAL DIALYSIS
     Route: 033
     Dates: start: 201309, end: 20140411

REACTIONS (7)
  - Pneumonia [Fatal]
  - Renal failure chronic [Fatal]
  - Sepsis [Fatal]
  - Abdominal mass [Unknown]
  - Peritonitis [Not Recovered/Not Resolved]
  - Hypotension [Unknown]
  - Constipation [Unknown]
